FAERS Safety Report 4867398-1 (Version None)
Quarter: 2005Q4

REPORT INFORMATION
  Report Type: 
  Country: None (occurrence: None)
  Receive Date: 20051222
  Receipt Date: 20051222
  Transmission Date: 20060501
  Serious: Yes (Life-Threatening)
  Sender: FDA-Public Use
  Company Number: None

PATIENT
  Age: 53 Year
  Sex: Female
  Weight: 63.5036 kg

DRUGS (1)
  1. FACTIVE [Suspect]
     Indication: NASOPHARYNGITIS
     Dosage: 1 PILL WAS TEKEN ONCE PO
     Route: 048
     Dates: start: 20051114, end: 20051114

REACTIONS (1)
  - FALL [None]
